FAERS Safety Report 6705739-0 (Version None)
Quarter: 2010Q2

REPORT INFORMATION
  Report Type: 
  Country: None (occurrence: None)
  Receive Date: 20100503
  Receipt Date: 20100420
  Transmission Date: 20101027
  Serious: Yes (Hospitalization)
  Sender: FDA-Public Use
  Company Number: GB-JNJFOC-20100405428

PATIENT
  Sex: Male
  Weight: 65 kg

DRUGS (7)
  1. PLACEBO [Suspect]
     Indication: RHEUMATOID ARTHRITIS
     Route: 042
  2. PLACEBO [Suspect]
     Route: 042
  3. METHOTREXATE [Suspect]
     Indication: RHEUMATOID ARTHRITIS
     Route: 048
  4. METHOTREXATE [Suspect]
     Route: 048
  5. METHOTREXATE [Suspect]
     Route: 048
  6. METHYLPREDNISOLONE [Concomitant]
  7. FOLIC ACID [Concomitant]
     Dosage: DAILY EXCEPT DAY METHOTREXATE IS TAKEN

REACTIONS (2)
  - ORGANISING PNEUMONIA [None]
  - TUBERCULOSIS [None]
